FAERS Safety Report 21768427 (Version 2)
Quarter: 2022Q4

REPORT INFORMATION
  Report Type: Report from Study
  Country: US (occurrence: US)
  Receive Date: 20221222
  Receipt Date: 20221222
  Transmission Date: 20230113
  Serious: No
  Sender: FDA-Public Use
  Company Number: US-ABBVIE-4206900

PATIENT
  Sex: Female

DRUGS (5)
  1. HUMIRA [Suspect]
     Active Substance: ADALIMUMAB
     Indication: Ankylosing spondylitis
     Dosage: EVENT ONSET DATE FOR HUMIRA INEFFECTIVE IS 2022.
     Route: 058
     Dates: start: 202209
  2. HUMIRA [Suspect]
     Active Substance: ADALIMUMAB
     Indication: Diarrhoea
  3. HUMIRA [Suspect]
     Active Substance: ADALIMUMAB
     Indication: Pain
  4. HUMIRA [Suspect]
     Active Substance: ADALIMUMAB
     Indication: Ankylosing spondylitis
  5. CYMBALTA [Concomitant]
     Active Substance: DULOXETINE HYDROCHLORIDE
     Indication: Product used for unknown indication

REACTIONS (1)
  - Drug ineffective [Unknown]
